FAERS Safety Report 4359877-0 (Version None)
Quarter: 2004Q2

REPORT INFORMATION
  Report Type: 
  Country: None (occurrence: None)
  Receive Date: 20040517
  Receipt Date: 20040517
  Transmission Date: 20050107
  Serious: Yes (Death, Other)
  Sender: FDA-Public Use
  Company Number: None

PATIENT
  Age: 56 Year
  Sex: Male
  Weight: 64.4108 kg

DRUGS (7)
  1. THALIDOMIDE [Suspect]
     Indication: MULTIPLE MYELOMA
     Dosage: PO STARTED AT 50 MG QHS X 1 WK INCREASED BY 50 MG EVERY WK DOSE WAS 200 MG Q HS WHEN EFF
     Route: 048
     Dates: start: 20040222, end: 20040418
  2. DEXAMETHASONE [Suspect]
     Indication: MULTIPLE MYELOMA
     Dosage: 40 MG PO DAILY DAYS 1-4, 9-12, 17-20
     Route: 048
     Dates: start: 20040410
  3. LEVAQUIN [Concomitant]
  4. DURAGESIC [Concomitant]
  5. OXYCODONE [Concomitant]
  6. PEPCID [Concomitant]
  7. COMPAZINE [Concomitant]

REACTIONS (10)
  - ATRIAL FIBRILLATION [None]
  - CHEST PAIN [None]
  - DYSPNOEA [None]
  - HEART RATE IRREGULAR [None]
  - HYPOCALCAEMIA [None]
  - NEUTROPENIA [None]
  - PAIN [None]
  - PNEUMONIA [None]
  - RENAL FAILURE CHRONIC [None]
  - THROMBOCYTOPENIA [None]
